FAERS Safety Report 8059884-0 (Version None)
Quarter: 2012Q1

REPORT INFORMATION
  Report Type: 
  Country: None (occurrence: None)
  Receive Date: 20120120
  Receipt Date: 20120110
  Transmission Date: 20120608
  Serious: Yes (Hospitalization)
  Sender: FDA-Public Use
  Company Number: US-JNJFOC-20101206594

PATIENT
  Age: 22 Year
  Sex: Female
  Weight: 52.3 kg

DRUGS (12)
  1. CLONAZEPAM [Concomitant]
  2. KELP [Concomitant]
  3. LAMOTRIGINE [Concomitant]
  4. ALBUTEROL [Concomitant]
  5. SYNTHROID [Concomitant]
  6. ADVAIR DISKUS 100/50 [Concomitant]
  7. EFFEXOR [Concomitant]
  8. ACETAMINOPHEN [Suspect]
     Indication: FIBROMYALGIA
     Dosage: 2500 - 3000 MG, DAILY
     Route: 048
  9. ACETAMINOPHEN [Suspect]
     Dosage: 500 MG, 5 TO A ^HANDFUL^
     Route: 048
     Dates: start: 20101201, end: 20101201
  10. TRAMADOL HCL [Concomitant]
  11. VITAMIN D [Concomitant]
  12. CRANBERRY PILL [Concomitant]

REACTIONS (7)
  - VOMITING [None]
  - SELF INJURIOUS BEHAVIOUR [None]
  - ABDOMINAL PAIN [None]
  - PROTHROMBIN TIME PROLONGED [None]
  - INTENTIONAL OVERDOSE [None]
  - BLOOD BILIRUBIN INCREASED [None]
  - HEPATIC ENZYME INCREASED [None]
